FAERS Safety Report 19377928 (Version 3)
Quarter: 2021Q3

REPORT INFORMATION
  Report Type: Spontaneous
  Country: US (occurrence: US)
  Receive Date: 20210604
  Receipt Date: 20210903
  Transmission Date: 20211014
  Serious: No
  Sender: FDA-Public Use
  Company Number: US-BRAINTREE LABORATORIES, INC.-2021BTE00335

PATIENT
  Age: 86 Year
  Sex: Female
  Weight: 64.85 kg

DRUGS (4)
  1. DULCOLAX NOS [Suspect]
     Active Substance: BISACODYL OR DOCUSATE SODIUM
     Indication: COLONOSCOPY
     Dosage: UNK
     Dates: start: 202105, end: 202105
  2. UNSPECIFIED MEDICATIONS [Concomitant]
     Active Substance: UNSPECIFIED INGREDIENT
  3. UNSPECIFIED VITAMINS [Concomitant]
     Active Substance: VITAMINS
  4. SUTAB [Suspect]
     Active Substance: MAGNESIUM SULFATE\POTASSIUM CHLORIDE\SODIUM SULFATE
     Indication: COLONOSCOPY
     Dosage: 2 X 12 TABLETS, 1X
     Route: 048
     Dates: start: 202105, end: 202105

REACTIONS (3)
  - Wrong technique in product usage process [Recovered/Resolved]
  - Abdominal distension [Recovered/Resolved]
  - Asthenia [Recovered/Resolved]

NARRATIVE: CASE EVENT DATE: 202105
